FAERS Safety Report 22822124 (Version 3)
Quarter: 2023Q4

REPORT INFORMATION
  Report Type: Spontaneous
  Country: US (occurrence: US)
  Receive Date: 20230814
  Receipt Date: 20231005
  Transmission Date: 20240110
  Serious: Yes (Other)
  Sender: FDA-Public Use
  Company Number: US-INCYTE CORPORATION-2023IN007489

PATIENT

DRUGS (1)
  1. OPZELURA [Suspect]
     Active Substance: RUXOLITINIB PHOSPHATE
     Indication: Vitiligo
     Dosage: UNK, BID
     Route: 061
     Dates: start: 202210

REACTIONS (6)
  - Peptostreptococcus infection [Not Recovered/Not Resolved]
  - Microsporum infection [Not Recovered/Not Resolved]
  - Skin infection [Not Recovered/Not Resolved]
  - Nail fold inflammation [Not Recovered/Not Resolved]
  - Onychomadesis [Not Recovered/Not Resolved]
  - Nail injury [Unknown]

NARRATIVE: CASE EVENT DATE: 20230801
